FAERS Safety Report 4977749-5 (Version None)
Quarter: 2006Q2

REPORT INFORMATION
  Report Type: 
  Country: None (occurrence: None)
  Receive Date: 20060420
  Receipt Date: 20060410
  Transmission Date: 20061013
  Serious: Yes (Hospitalization)
  Sender: FDA-Public Use
  Company Number: FR-AMGEN-UK175784

PATIENT
  Age: 51 Year
  Sex: Male

DRUGS (13)
  1. KEPIVANCE [Suspect]
     Indication: PRE-EXISTING DISEASE
     Route: 042
     Dates: start: 20060225, end: 20060305
  2. ALKERAN [Concomitant]
     Route: 042
     Dates: start: 20060301
  3. VELCADE [Concomitant]
     Route: 042
     Dates: start: 20060225, end: 20060307
  4. SERESTA [Concomitant]
     Route: 065
  5. MORPHINE SULFATE [Concomitant]
     Route: 065
  6. SKENAN [Concomitant]
     Route: 065
  7. ACYCLOVIR [Concomitant]
     Route: 065
     Dates: start: 20060301
  8. RANITIDINE [Concomitant]
     Route: 065
     Dates: start: 20060301
  9. AMPHOTERICIN B [Concomitant]
     Route: 065
     Dates: start: 20060301
  10. FLUCONAZOLE [Concomitant]
     Route: 065
     Dates: start: 20060301
  11. HEPARIN [Concomitant]
     Route: 065
     Dates: start: 20060301
  12. GELOX [Concomitant]
     Route: 065
     Dates: start: 20060301
  13. ONDANSETRON [Concomitant]
     Route: 065
     Dates: start: 20060301

REACTIONS (8)
  - BURNING SENSATION [None]
  - ERYTHEMA [None]
  - FACE OEDEMA [None]
  - INFLAMMATION [None]
  - MOUTH ULCERATION [None]
  - OEDEMA [None]
  - SKIN DISCOLOURATION [None]
  - STOMATITIS [None]
